FAERS Safety Report 4742288-3 (Version None)
Quarter: 2005Q3

REPORT INFORMATION
  Report Type: 
  Country: None (occurrence: None)
  Receive Date: 20050811
  Receipt Date: 20050404
  Transmission Date: 20060218
  Serious: No
  Sender: FDA-Public Use
  Company Number: US-GLAXOSMITHKLINE-A0552588A

PATIENT
  Age: 56 Year
  Sex: Female

DRUGS (6)
  1. PAXIL CR [Suspect]
     Indication: DEPRESSION
     Dosage: 50MG PER DAY
     Route: 048
     Dates: start: 20040101, end: 20050301
  2. WELLBUTRIN [Concomitant]
  3. EVISTA [Concomitant]
  4. LIPITOR [Concomitant]
  5. NEXIUM [Concomitant]
  6. TOPAMAX [Concomitant]

REACTIONS (2)
  - IRRITABILITY [None]
  - NAUSEA [None]
